FAERS Safety Report 19382303 (Version 3)
Quarter: 2021Q2

REPORT INFORMATION
  Report Type: Spontaneous
  Country: BR (occurrence: BR)
  Receive Date: 20210607
  Receipt Date: 20210629
  Transmission Date: 20210717
  Serious: Yes (Other)
  Sender: FDA-Public Use
  Company Number: BR-AMGEN-BRASP2021085580

PATIENT
  Age: 59 Year
  Sex: Female

DRUGS (2)
  1. BLINCYTO [Suspect]
     Active Substance: BLINATUMOMAB
     Indication: B PRECURSOR TYPE ACUTE LEUKAEMIA
     Dosage: UNK
     Route: 065
     Dates: start: 20210526, end: 20210527
  2. BLINCYTO [Suspect]
     Active Substance: BLINATUMOMAB
     Dosage: A 72?HOUR BAG (3.3 M/H)
     Route: 065
     Dates: start: 20210615, end: 202106

REACTIONS (6)
  - Laboratory test abnormal [Recovering/Resolving]
  - Condition aggravated [Unknown]
  - Hepatic enzyme increased [Unknown]
  - Hepatotoxicity [Unknown]
  - Platelet count decreased [Unknown]
  - Seizure [Unknown]

NARRATIVE: CASE EVENT DATE: 2021
